FAERS Safety Report 25584008 (Version 1)
Quarter: 2025Q3

REPORT INFORMATION
  Report Type: Spontaneous
  Country: US (occurrence: None)
  Receive Date: 20250721
  Receipt Date: 20250721
  Transmission Date: 20251020
  Serious: Yes (Life-Threatening, Hospitalization)
  Sender: ENCUBE ETHICALS
  Company Number: US-Encube-002062

PATIENT
  Age: 37 Year
  Sex: Male

DRUGS (4)
  1. FLUOROURACIL [Suspect]
     Active Substance: FLUOROURACIL
     Indication: Oesophageal cancer metastatic
  2. OXALIPLATIN [Concomitant]
     Active Substance: OXALIPLATIN
     Indication: Oesophageal cancer metastatic
  3. LEUCOVORIN [Concomitant]
     Active Substance: LEUCOVORIN\LEUCOVORIN CALCIUM
     Indication: Oesophageal cancer metastatic
  4. NIVOLUMAB [Concomitant]
     Active Substance: NIVOLUMAB
     Indication: Oesophageal cancer metastatic

REACTIONS (15)
  - Cardiotoxicity [Recovered/Resolved]
  - Toxicity to various agents [Recovered/Resolved]
  - Off label use [Unknown]
  - Cardiogenic shock [Recovered/Resolved]
  - Nausea [Recovered/Resolved]
  - Stress cardiomyopathy [Recovered/Resolved]
  - Idiosyncratic drug reaction [Recovered/Resolved]
  - Vasospasm [Recovered/Resolved]
  - Gastrointestinal toxicity [Recovered/Resolved]
  - Chest pain [Recovered/Resolved]
  - Dyspnoea [Recovered/Resolved]
  - Hypotension [Recovered/Resolved]
  - Hypoxia [Recovered/Resolved]
  - Rales [Recovered/Resolved]
  - Tachycardia [Recovered/Resolved]
